FAERS Safety Report 8158797-3 (Version None)
Quarter: 2012Q1

REPORT INFORMATION
  Report Type: 
  Country: None (occurrence: None)
  Receive Date: 20120223
  Receipt Date: 20120215
  Transmission Date: 20120608
  Serious: Yes (Other)
  Sender: FDA-Public Use
  Company Number: PHHY2012ES013104

PATIENT
  Age: 55 Year
  Sex: Female
  Weight: 70 kg

DRUGS (5)
  1. VENLAFAXINE [Concomitant]
  2. ESOMEPRAZOLE [Concomitant]
  3. GEMFIBROZIL [Suspect]
     Dosage: 600 MG, PER DAY
  4. METAMIZOLE [Concomitant]
  5. ENOXAPARIN [Concomitant]

REACTIONS (4)
  - LIVER FUNCTION TEST ABNORMAL [None]
  - MALAISE [None]
  - NAUSEA [None]
  - HEPATITIS TOXIC [None]
